FAERS Safety Report 12428672 (Version 1)
Quarter: 2016Q2

REPORT INFORMATION
  Report Type: Spontaneous
  Country: US (occurrence: None)
  Receive Date: 20160601
  Receipt Date: 20160601
  Transmission Date: 20160815
  Serious: Yes (Death)
  Sender: FDA-Public Use
  Company Number: None

PATIENT
  Age: 70 Year
  Sex: Male

DRUGS (1)
  1. GLEOSTINE [Suspect]
     Active Substance: LOMUSTINE
     Indication: BRAIN NEOPLASM MALIGNANT
     Dosage: GLEOSTINE 180 MG EVERY 6 WEEKS ORAL
     Route: 048
     Dates: start: 20150909, end: 20160504

REACTIONS (2)
  - Pneumonia [None]
  - White blood cell count decreased [None]

NARRATIVE: CASE EVENT DATE: 20160504
